FAERS Safety Report 16676233 (Version 1)
Quarter: 2019Q3

REPORT INFORMATION
  Report Type: Report from Study
  Country: BR (occurrence: BR)
  Receive Date: 20190807
  Receipt Date: 20190807
  Transmission Date: 20191004
  Serious: Yes (Hospitalization)
  Sender: FDA-Public Use
  Company Number: BR-UCBSA-2019029996

PATIENT
  Sex: Female

DRUGS (4)
  1. LEVETIRACETAM. [Suspect]
     Active Substance: LEVETIRACETAM
     Indication: PARKINSON^S DISEASE
     Dosage: 250 MILLIGRAM, ONCE DAILY (QD)
     Route: 048
     Dates: start: 2016
  2. DIOVAN [Concomitant]
     Active Substance: VALSARTAN
     Indication: PARKINSON^S DISEASE
  3. LEVETIRACETAM. [Suspect]
     Active Substance: LEVETIRACETAM
     Indication: OFF LABEL USE
     Dosage: 250 MG 4 TABLETS
     Route: 048
     Dates: start: 201901
  4. PROLOPA [Concomitant]
     Active Substance: BENSERAZIDE\LEVODOPA
     Indication: PARKINSON^S DISEASE

REACTIONS (4)
  - Off label use [Unknown]
  - Intentional product misuse [Unknown]
  - Hospitalisation [Unknown]
  - Drooling [Recovering/Resolving]

NARRATIVE: CASE EVENT DATE: 2016
